FAERS Safety Report 7702926-X (Version None)
Quarter: 2011Q3

REPORT INFORMATION
  Report Type: 
  Country: None (occurrence: None)
  Receive Date: 20110823
  Receipt Date: 20110808
  Transmission Date: 20111222
  Serious: Yes (Death, Hospitalization, Other)
  Sender: FDA-Public Use
  Company Number: DE-UCBSA-038189

PATIENT
  Sex: Female

DRUGS (2)
  1. VALPROIC ACID [Concomitant]
  2. KEPPRA [Suspect]
     Indication: EPILEPSY
     Dosage: 1000 MG
     Route: 048

REACTIONS (19)
  - MEMORY IMPAIRMENT [None]
  - BRADYPHRENIA [None]
  - HEADACHE [None]
  - DIZZINESS [None]
  - WEIGHT DECREASED [None]
  - STRESS [None]
  - FEELING ABNORMAL [None]
  - DIPLOPIA [None]
  - IRRITABILITY [None]
  - CONVULSION [None]
  - DISTURBANCE IN ATTENTION [None]
  - SOMNOLENCE [None]
  - ACNE [None]
  - WEIGHT INCREASED [None]
  - DEATH [None]
  - GRAND MAL CONVULSION [None]
  - SPEECH DISORDER [None]
  - TREMOR [None]
  - FATIGUE [None]
